FAERS Safety Report 5316008-8 (Version None)
Quarter: 2007Q2

REPORT INFORMATION
  Report Type: 
  Country: None (occurrence: None)
  Receive Date: 20070503
  Receipt Date: 20070425
  Transmission Date: 20071010
  Serious: Yes (Disabling)
  Sender: FDA-Public Use
  Company Number: US-ROCHE-491250

PATIENT
  Age: 75 Year
  Sex: Female
  Weight: 86.2 kg

DRUGS (11)
  1. BONIVA [Suspect]
     Indication: OSTEOPOROSIS
     Route: 042
     Dates: start: 20070319
  2. DIGOXIN [Concomitant]
  3. ATENOLOL [Concomitant]
  4. PREVACID [Concomitant]
  5. COUMADIN [Concomitant]
     Dosage: REPORTED AS 2.5 MG ON S,T AND 5.0 MG ON M,W,T,F,S
  6. VITAMINS NOS [Concomitant]
     Dosage: DAILY MULTIVITAMIN.
  7. CALCIUM CHLORIDE [Concomitant]
  8. GLUCOSAMINE [Concomitant]
  9. CHONDROITIN [Concomitant]
  10. ASCORBIC ACID [Concomitant]
  11. DARVOCET [Concomitant]

REACTIONS (10)
  - CARDIAC MURMUR [None]
  - CELLULITIS [None]
  - FATIGUE [None]
  - HEADACHE [None]
  - INFUSION RELATED REACTION [None]
  - INJECTION SITE REACTION [None]
  - MUSCULOSKELETAL STIFFNESS [None]
  - PAIN [None]
  - PYREXIA [None]
  - SOMNOLENCE [None]
